FAERS Safety Report 6240839-3 (Version None)
Quarter: 2009Q2

REPORT INFORMATION
  Report Type: 
  Country: None (occurrence: None)
  Receive Date: 20090623
  Receipt Date: 20090612
  Transmission Date: 20091009
  Serious: Yes (Other)
  Sender: FDA-Public Use
  Company Number: DE-BAXTER-2009BH005605

PATIENT
  Age: 47 Year
  Sex: Female
  Weight: 150 kg

DRUGS (4)
  1. CYCLOPHOSPHAMIDE [Suspect]
     Indication: BREAST CANCER
     Dosage: 1000
     Route: 042
     Dates: start: 20080718, end: 20081118
  2. EPIRUBICIN [Concomitant]
     Indication: BREAST CANCER
     Dosage: 2000
     Route: 042
  3. ARIMIDEX [Concomitant]
     Indication: THROMBOSIS
     Route: 065
     Dates: start: 20090201
  4. HERCEPTIN [Concomitant]
     Indication: DRUG USE FOR UNKNOWN INDICATION
     Route: 065
     Dates: start: 20090201

REACTIONS (1)
  - TEETH BRITTLE [None]
